FAERS Safety Report 12432990 (Version 4)
Quarter: 2018Q3

REPORT INFORMATION
  Report Type: Spontaneous
  Country: US (occurrence: US)
  Receive Date: 20160603
  Receipt Date: 20180713
  Transmission Date: 20181010
  Serious: Yes (Other)
  Sender: FDA-Public Use
  Company Number: US-DSJP-DSU-2015-121212

PATIENT

DRUGS (5)
  1. CITALOPRAM [Concomitant]
     Active Substance: CITALOPRAM HYDROBROMIDE
     Indication: DEPRESSION
  2. BENICAR [Suspect]
     Active Substance: OLMESARTAN MEDOXOMIL
     Indication: HYPERTENSION
     Dosage: 5 MG, QD
     Route: 048
  3. CITALOPRAM [Concomitant]
     Active Substance: CITALOPRAM HYDROBROMIDE
     Indication: ANXIETY
     Dosage: UNK
  4. MAXALT [Concomitant]
     Active Substance: RIZATRIPTAN BENZOATE
     Indication: PRODUCT USED FOR UNKNOWN INDICATION
     Dosage: UNK
  5. BENICAR [Suspect]
     Active Substance: OLMESARTAN MEDOXOMIL
     Dosage: 40 MG, QD
     Route: 048
     Dates: start: 2002, end: 201407

REACTIONS (14)
  - Helicobacter infection [Not Recovered/Not Resolved]
  - Vitamin D deficiency [Unknown]
  - Night sweats [Unknown]
  - Anal pruritus [Not Recovered/Not Resolved]
  - Irritable bowel syndrome [Unknown]
  - Lymphocytic infiltration [Not Recovered/Not Resolved]
  - Libido decreased [Unknown]
  - Anxiety [Not Recovered/Not Resolved]
  - Sprue-like enteropathy [Recovering/Resolving]
  - Gastritis erosive [Unknown]
  - Intestinal metaplasia [Unknown]
  - Depression [Not Recovered/Not Resolved]
  - Coeliac disease [Unknown]
  - Insomnia [Unknown]

NARRATIVE: CASE EVENT DATE: 2010
